FAERS Safety Report 25686809 (Version 1)
Quarter: 2025Q3

REPORT INFORMATION
  Report Type: Spontaneous
  Country: EU (occurrence: EU)
  Receive Date: 20250816
  Receipt Date: 20250816
  Transmission Date: 20251020
  Serious: Yes (Hospitalization, Other)
  Sender: AUROBINDO
  Company Number: EU-AFSSAPS-RS2025000788

PATIENT
  Age: 94 Year
  Sex: Female
  Weight: 49.2 kg

DRUGS (3)
  1. SERTRALINE [Suspect]
     Active Substance: SERTRALINE HYDROCHLORIDE
     Indication: Depression
     Dosage: 50 MILLIGRAM, ONCE A DAY
     Route: 048
     Dates: start: 20250714, end: 20250727
  2. CYAMEMAZINE [Suspect]
     Active Substance: CYAMEMAZINE
     Indication: Paranoia
     Dosage: 50 MILLIGRAM, ONCE A DAY
     Route: 048
     Dates: start: 202506, end: 20250727
  3. RISPERDAL [Suspect]
     Active Substance: RISPERIDONE
     Indication: Aggression
     Route: 048
     Dates: start: 202502, end: 20250727

REACTIONS (1)
  - Hepatitis cholestatic [Recovered/Resolved with Sequelae]

NARRATIVE: CASE EVENT DATE: 20250727
